FAERS Safety Report 8933211 (Version 1)
Quarter: 2012Q4

REPORT INFORMATION
  Report Type: 
  Country: US (occurrence: US)
  Receive Date: 20121129
  Receipt Date: 20121129
  Transmission Date: 20130627
  Serious: Yes (Other)
  Sender: FDA-Public Use
  Company Number: PHEH2012US023247

PATIENT
  Sex: Female

DRUGS (7)
  1. ZOMETA [Suspect]
     Indication: MULTIPLE MYELOMA
  2. AMOXICILLIN [Concomitant]
  3. ASA [Concomitant]
  4. LUTEIN [Concomitant]
  5. LYSINE [Concomitant]
  6. REVLIMID [Concomitant]
  7. MULTIVITAMIN /VITAMIN C [Concomitant]

REACTIONS (1)
  - Osteonecrosis of jaw [Unknown]
